FAERS Safety Report 12537614 (Version 1)
Quarter: 2016Q3

REPORT INFORMATION
  Report Type: Spontaneous
  Country: US (occurrence: US)
  Receive Date: 20160707
  Receipt Date: 20160707
  Transmission Date: 20161109
  Serious: Yes (Other)
  Sender: FDA-Public Use
  Company Number: US-PFIZER INC-2016329364

PATIENT
  Age: 88 Year
  Sex: Female

DRUGS (1)
  1. PROCAINAMIDE [Suspect]
     Active Substance: PROCAINAMIDE HYDROCHLORIDE
     Dosage: UNK

REACTIONS (2)
  - Systemic lupus erythematosus [Unknown]
  - Drug hypersensitivity [Unknown]
